FAERS Safety Report 9250057 (Version 2)
Quarter: 2013Q3

REPORT INFORMATION
  Report Type: Spontaneous
  Country: US (occurrence: US)
  Receive Date: 20130424
  Receipt Date: 20130902
  Transmission Date: 20140515
  Serious: No
  Sender: FDA-Public Use
  Company Number: US-BIOGENIDEC-2013BI025362

PATIENT
  Age: 33 Year
  Sex: Female

DRUGS (8)
  1. AVONEX [Suspect]
     Indication: MULTIPLE SCLEROSIS
     Route: 030
     Dates: start: 20130307
  2. AVONEX [Suspect]
     Indication: MULTIPLE SCLEROSIS
     Route: 030
     Dates: start: 20130309
  3. AVONEX [Suspect]
     Indication: MULTIPLE SCLEROSIS
     Route: 030
     Dates: start: 20130329
  4. AVONEX [Suspect]
     Indication: MULTIPLE SCLEROSIS
     Route: 030
     Dates: start: 20130407
  5. IBUPROFEN [Concomitant]
     Indication: HYPOAESTHESIA
  6. IBUPROFEN [Concomitant]
     Indication: SENSATION OF HEAVINESS
  7. IBUPROFEN [Concomitant]
     Indication: MYALGIA
  8. IBUPROFEN [Concomitant]
     Indication: MUSCLE FATIGUE

REACTIONS (9)
  - Oropharyngeal pain [Unknown]
  - Nasal congestion [Unknown]
  - Muscle fatigue [Recovered/Resolved]
  - Hypoaesthesia [Recovered/Resolved]
  - Sensation of heaviness [Recovered/Resolved]
  - Underdose [Recovered/Resolved]
  - Pyrexia [Recovered/Resolved]
  - Myalgia [Recovered/Resolved]
  - Chills [Recovered/Resolved]
